FAERS Safety Report 4642088-9 (Version None)
Quarter: 2005Q2

REPORT INFORMATION
  Report Type: 
  Country: None (occurrence: None)
  Receive Date: 20050421
  Receipt Date: 20050421
  Transmission Date: 20051028
  Serious: No
  Sender: FDA-Public Use
  Company Number: None

PATIENT
  Age: 76 Year
  Sex: Female

DRUGS (2)
  1. ALBUTEROL [Suspect]
     Indication: ASTHMA
     Dosage: 3ML  EVERY 6 HOURS  ORAL
     Route: 048
     Dates: start: 20031126, end: 20050420
  2. IPRATROPIUM BROMIDE [Suspect]
     Indication: ASTHMA
     Dosage: 2.5ML  EVERY 6 HOURS   ORAL
     Route: 048
     Dates: start: 20031226, end: 20050420

REACTIONS (2)
  - CIRCUMSTANCE OR INFORMATION CAPABLE OF LEADING TO MEDICATION ERROR [None]
  - MEDICATION ERROR [None]
